FAERS Safety Report 7039850-4 (Version None)
Quarter: 2010Q4

REPORT INFORMATION
  Report Type: 
  Country: None (occurrence: None)
  Receive Date: 20101012
  Receipt Date: 20101005
  Transmission Date: 20110411
  Serious: Yes (Death, Other)
  Sender: FDA-Public Use
  Company Number: US-AMGEN-QUU430725

PATIENT
  Sex: Male
  Weight: 76.5 kg

DRUGS (3)
  1. NPLATE [Suspect]
     Indication: IDIOPATHIC THROMBOCYTOPENIC PURPURA
     Route: 058
     Dates: start: 20091223, end: 20100127
  2. CORTICOSTEROIDS [Concomitant]
  3. IMMU-G [Concomitant]
     Route: 042
     Dates: start: 20091223, end: 20100212

REACTIONS (3)
  - CHRONIC LYMPHOCYTIC LEUKAEMIA [None]
  - DRUG INEFFECTIVE [None]
  - MICROCYTIC ANAEMIA [None]
